FAERS Safety Report 7672330-1 (Version None)
Quarter: 2011Q3

REPORT INFORMATION
  Report Type: 
  Country: None (occurrence: None)
  Receive Date: 20110809
  Receipt Date: 20110805
  Transmission Date: 20111222
  Serious: Yes (Hospitalization, Other)
  Sender: FDA-Public Use
  Company Number: US-PFIZER INC-2011111738

PATIENT
  Sex: Male

DRUGS (4)
  1. LORTAB [Concomitant]
     Indication: BACK PAIN
     Dosage: UNK
     Dates: start: 20030101, end: 20080101
  2. XANAX [Concomitant]
     Indication: ANXIETY
     Dosage: UNK
     Dates: start: 20060101, end: 20080101
  3. CHANTIX [Suspect]
     Indication: SMOKING CESSATION THERAPY
     Dosage: 0.5/1 MG
     Dates: start: 20070326, end: 20080401
  4. CAMPRAL [Concomitant]
     Indication: ALCOHOLISM
     Dosage: UNK
     Dates: start: 20020101

REACTIONS (3)
  - INTENTIONAL OVERDOSE [None]
  - DEPRESSION [None]
  - SUICIDE ATTEMPT [None]
